FAERS Safety Report 4892645-X (Version None)
Quarter: 2006Q1

REPORT INFORMATION
  Report Type: 
  Country: None (occurrence: None)
  Receive Date: 20060125
  Receipt Date: 20060125
  Transmission Date: 20060701
  Serious: Yes (Other)
  Sender: FDA-Public Use
  Company Number: None

PATIENT
  Age: 69 Year
  Sex: Female

DRUGS (1)
  1. ACTONEL [Suspect]
     Indication: OSTEOPOROSIS
     Dosage: TAKE 1 TABLET ONCE A WEEK
     Dates: start: 20060118

REACTIONS (5)
  - ABASIA [None]
  - ARTHRALGIA [None]
  - BONE PAIN [None]
  - MYALGIA [None]
  - PAIN IN EXTREMITY [None]
